FAERS Safety Report 20433366 (Version 1)
Quarter: 2022Q1

REPORT INFORMATION
  Report Type: Spontaneous
  Country: IR (occurrence: IR)
  Receive Date: 20220205
  Receipt Date: 20220205
  Transmission Date: 20220423
  Serious: Yes (Death, Other)
  Sender: FDA-Public Use
  Company Number: IR-PRA-001135

PATIENT
  Age: 53 Year
  Sex: Male

DRUGS (2)
  1. METHYLPREDNISOLONE [Suspect]
     Active Substance: METHYLPREDNISOLONE
     Indication: Hypertrophic olivary degeneration
     Route: 042
  2. HUMAN IMMUNOGLOBULIN G [Suspect]
     Active Substance: HUMAN IMMUNOGLOBULIN G
     Indication: Hypertrophic olivary degeneration
     Route: 042

REACTIONS (4)
  - Metastases to liver [Fatal]
  - Metastases to adrenals [Fatal]
  - Therapeutic product effect incomplete [Unknown]
  - Product use in unapproved indication [Unknown]
